FAERS Safety Report 6197392-2 (Version None)
Quarter: 2009Q2

REPORT INFORMATION
  Report Type: 
  Country: None (occurrence: None)
  Receive Date: 20090521
  Receipt Date: 20090513
  Transmission Date: 20091009
  Serious: Yes (Hospitalization, Other)
  Sender: FDA-Public Use
  Company Number: PHHY2009JP06073

PATIENT
  Sex: Female
  Weight: 49 kg

DRUGS (10)
  1. DIOVAN [Suspect]
     Indication: HYPERTENSION
     Dosage: 80 MG, QD
     Route: 048
     Dates: end: 20090119
  2. DEPAS [Concomitant]
     Dosage: UNK
     Route: 048
     Dates: end: 20090105
  3. OPALMON [Concomitant]
     Dosage: 3 DF, UNK
     Route: 048
     Dates: end: 20090105
  4. LASIX [Concomitant]
     Indication: CARDIAC FAILURE CONGESTIVE
     Dosage: 20 MG
     Route: 048
  5. GASTER D [Concomitant]
     Dosage: UNK
     Route: 048
     Dates: end: 20090105
  6. ZYLORIC [Concomitant]
     Dosage: 2 DF, UNK
     Route: 048
     Dates: end: 20090105
  7. PERSANTINE [Concomitant]
     Dosage: UNK
     Route: 048
     Dates: end: 20090105
  8. SERMION [Concomitant]
     Dosage: 3 DF, UNK
     Route: 048
     Dates: end: 20090105
  9. MAGMITT KENEI [Concomitant]
     Indication: CONSTIPATION
     Dosage: UNK
     Route: 048
     Dates: start: 20090218
  10. PURSENNID                               /SCH/ [Concomitant]
     Indication: CONSTIPATION
     Dosage: UNK
     Route: 048
     Dates: start: 20090218

REACTIONS (14)
  - ALTERED STATE OF CONSCIOUSNESS [None]
  - ANAEMIA [None]
  - BLOOD PRESSURE SYSTOLIC DECREASED [None]
  - C-REACTIVE PROTEIN INCREASED [None]
  - CONDITION AGGRAVATED [None]
  - HAEMATOCRIT DECREASED [None]
  - HAEMOGLOBIN DECREASED [None]
  - HEART RATE DECREASED [None]
  - HYPONATRAEMIA [None]
  - HYPOPHAGIA [None]
  - INAPPROPRIATE ANTIDIURETIC HORMONE SECRETION [None]
  - MONOCYTE COUNT INCREASED [None]
  - PNEUMONIA [None]
  - RED BLOOD CELL COUNT DECREASED [None]
